FAERS Safety Report 8625669-7 (Version None)
Quarter: 2012Q3

REPORT INFORMATION
  Report Type: 
  Country: None (occurrence: None)
  Receive Date: 20120827
  Receipt Date: 20120821
  Transmission Date: 20120928
  Serious: Yes (Hospitalization, Other)
  Sender: FDA-Public Use
  Company Number: BR-ROCHE-1105782

PATIENT
  Sex: Female
  Weight: 63 kg

DRUGS (6)
  1. LOSARTAN POTASSIUM [Concomitant]
  2. MABTHERA [Suspect]
     Indication: RHEUMATOID ARTHRITIS
     Route: 042
     Dates: start: 20120306
  3. TORSILAX [Concomitant]
  4. MABTHERA [Suspect]
     Dates: start: 20120321
  5. PREDNISONE TAB [Concomitant]
  6. HYDROCHLOROTHIAZIDE [Concomitant]

REACTIONS (7)
  - ARTHRALGIA [None]
  - HEADACHE [None]
  - ARTHROPATHY [None]
  - PYREXIA [None]
  - FEELING COLD [None]
  - CYST [None]
  - DIABETES MELLITUS [None]
